FAERS Safety Report 22190365 (Version 1)
Quarter: 2023Q2

REPORT INFORMATION
  Report Type: Other
  Country: AU (occurrence: AU)
  Receive Date: 20230410
  Receipt Date: 20230410
  Transmission Date: 20230722
  Serious: Yes (Other)
  Sender: FDA-Public Use
  Company Number: AU-CELLTRION INC.-2023AU007071

PATIENT

DRUGS (1)
  1. RITUXIMAB [Suspect]
     Active Substance: RITUXIMAB
     Indication: Product used for unknown indication

REACTIONS (7)
  - Systemic lupus erythematosus [Unknown]
  - Complement factor decreased [Unknown]
  - Double stranded DNA antibody positive [Unknown]
  - Arthritis [Unknown]
  - Alopecia [Unknown]
  - Rash [Unknown]
  - Drug ineffective for unapproved indication [Unknown]
